FAERS Safety Report 25106930 (Version 1)
Quarter: 2025Q1

REPORT INFORMATION
  Report Type: Spontaneous
  Country: BR (occurrence: BR)
  Receive Date: 20250321
  Receipt Date: 20250321
  Transmission Date: 20250409
  Serious: Yes (Death, Hospitalization)
  Sender: ALNYLAM PHARMACEUTICALS
  Company Number: BR-ALNYLAM PHARMACEUTICALS, INC.-ALN-2025-001970

PATIENT

DRUGS (2)
  1. OXLUMO [Suspect]
     Active Substance: LUMASIRAN
     Indication: Product used for unknown indication
     Route: 058
     Dates: start: 20231012, end: 20231012
  2. OXLUMO [Suspect]
     Active Substance: LUMASIRAN
     Route: 058
     Dates: start: 20250217, end: 20250217

REACTIONS (1)
  - Sepsis [Fatal]
